FAERS Safety Report 22081223 (Version 1)
Quarter: 2023Q1

REPORT INFORMATION
  Report Type: Spontaneous
  Country: CA (occurrence: CA)
  Receive Date: 20230309
  Receipt Date: 20230309
  Transmission Date: 20230418
  Serious: Yes (Other)
  Sender: FDA-Public Use
  Company Number: CA-HLS-202300485

PATIENT
  Sex: Male
  Weight: 113 kg

DRUGS (19)
  1. ACETAMINOPHEN [Concomitant]
     Active Substance: ACETAMINOPHEN
     Dosage: 1 EVERY 4 HOURS?AMOUNT: 650 MILLIGRAM?NOT SPECIFIED DOSAGE FORM
     Route: 065
  2. AZITHROMYCIN [Concomitant]
     Active Substance: AZITHROMYCIN
     Dosage: NOT SPECIFIED DOSAGE FORM
     Route: 065
  3. CLOZAPINE [Suspect]
     Active Substance: CLOZAPINE
     Indication: Schizoaffective disorder
     Dosage: 1 EVERY 1 DAYS?AMOUNT: 12.5 MILLIGRAM
     Route: 048
  4. CLOZAPINE [Suspect]
     Active Substance: CLOZAPINE
     Indication: Schizoaffective disorder
     Dosage: 1 EVERY 1 DAYS?AMOUNT: 12.5 MILLIGRAM?THERAPY DURATION: 2 DAYS
     Route: 048
  5. CLOZAPINE [Suspect]
     Active Substance: CLOZAPINE
     Indication: Schizoaffective disorder
     Dosage: 1 EVERY 1 DAYS?AMOUNT: 25 MILLIGRAM?THERAPY DURATION: 3 DAYS
     Route: 048
  6. CLOZAPINE [Suspect]
     Active Substance: CLOZAPINE
     Indication: Schizoaffective disorder
     Dosage: TABLETS DOSAGE FORM
     Route: 065
  7. LAMOTRIGINE [Concomitant]
     Active Substance: LAMOTRIGINE
     Dosage: 1 EVERY 1 DAYS?AMOUNT: 2000 MILLIGRAM
     Route: 065
  8. LEVOTHYROXINE SODIUM [Concomitant]
     Active Substance: LEVOTHYROXINE SODIUM
     Dosage: 1 EVERY 1 DAYS?AMOUNT: 125 MICROGRAM?NOT SPECIFIED DOSAGE FORM
     Route: 065
  9. LINAGLIPTIN [Concomitant]
     Active Substance: LINAGLIPTIN
     Dosage: 1 EVERY 1 DAYS?AMOUNT: 5 MILLIGRAM
     Route: 065
  10. POLYETHYLENE GLYCOL 3350 [Concomitant]
     Active Substance: POLYETHYLENE GLYCOL 3350
     Dosage: 2 EVERY 1 DAYS?AMOUNT: 17 GRAM
     Route: 065
  11. MELATONIN [Concomitant]
     Active Substance: MELATONIN
     Dosage: AMOUNT: 6 MILLIGRAM?NOT SPECIFIED DOSAGE FORM
     Route: 065
  12. OLANZAPINE [Concomitant]
     Active Substance: OLANZAPINE
     Dosage: NOT SPECIFIED DOSAGE FORM
     Route: 065
  13. OXAZEPAM [Concomitant]
     Active Substance: OXAZEPAM
     Dosage: AMOUNT: 15 MILLIGRAM?TABLETS DOSAGE FORM
     Route: 065
  14. PANTOPRAZOLE [Concomitant]
     Active Substance: PANTOPRAZOLE
     Dosage: AMOUNT: 40 MILLIGRAM?NOT SPECIFIED DOSAGE FORM
     Route: 065
  15. QUETIAPINE [Concomitant]
     Active Substance: QUETIAPINE
     Dosage: AMOUNT: 700 MILLIGRAM?TABLETS DOSAGE FORM
     Route: 065
  16. TIOTROPIUM BROMIDE MONOHYDRATE [Concomitant]
     Active Substance: TIOTROPIUM BROMIDE MONOHYDRATE
     Route: 065
  17. VITAMIN D NOS [Concomitant]
     Active Substance: VITAMIN D NOS
     Route: 065
  18. ZOPICLONE [Concomitant]
     Active Substance: ZOPICLONE
     Dosage: 1 EVERY 1 DAYS?AMOUNT: 15 MILLIGRAM?TABLETS DOSAGE FORM
     Route: 065
  19. ZUCLOPENTHIXOL DECANOATE [Concomitant]
     Active Substance: ZUCLOPENTHIXOL DECANOATE
     Dosage: AMOUNT: 250 MILLIGRAM
     Route: 030

REACTIONS (4)
  - Cough [Recovered/Resolved]
  - Dyspnoea [Recovered/Resolved]
  - Malaise [Recovered/Resolved]
  - Pyrexia [Recovered/Resolved]
